FAERS Safety Report 10868993 (Version 1)
Quarter: 2015Q1

REPORT INFORMATION
  Report Type: Spontaneous
  Country: US (occurrence: US)
  Receive Date: 20150225
  Receipt Date: 20150225
  Transmission Date: 20150721
  Serious: No
  Sender: FDA-Public Use
  Company Number: US-MYLANLABS-2014SP002109

PATIENT
  Age: 51 Year
  Sex: Male
  Weight: 86.18 kg

DRUGS (3)
  1. VANCOMYCIN [Suspect]
     Active Substance: VANCOMYCIN
     Dates: start: 201404
  2. VANCOMYCIN [Suspect]
     Active Substance: VANCOMYCIN
     Indication: LOCAL SWELLING
  3. VANCOMYCIN [Suspect]
     Active Substance: VANCOMYCIN
     Indication: ERYTHEMA

REACTIONS (1)
  - Product use issue [Unknown]

NARRATIVE: CASE EVENT DATE: 201404
